FAERS Safety Report 25041422 (Version 1)
Quarter: 2025Q1

REPORT INFORMATION
  Report Type: Spontaneous
  Country: ES (occurrence: ES)
  Receive Date: 20250305
  Receipt Date: 20250305
  Transmission Date: 20250408
  Serious: Yes (Life-Threatening, Hospitalization)
  Sender: SAMSUNG BIOEPIS
  Company Number: None

PATIENT
  Age: 65 Year
  Sex: Female

DRUGS (2)
  1. ONTRUZANT [Suspect]
     Active Substance: TRASTUZUMAB-DTTB
     Indication: Breast cancer
     Dosage: 135 MG/ 150 MG POWDER FOR CONCENTRATE FOR SOLUTION FOR INFUSION,1 VIAL;
     Route: 042
     Dates: start: 20250130, end: 20250131
  2. CARBOPLATIN [Suspect]
     Active Substance: CARBOPLATIN
     Indication: Breast cancer metastatic
     Dosage: 120 MG, 10 MG/ML, 1 VIAL, 15 ML;
     Route: 042
     Dates: start: 20250130, end: 20250131

REACTIONS (4)
  - Tumour lysis syndrome [Recovered/Resolved]
  - Hyperuricaemia [Recovered/Resolved]
  - Acute kidney injury [Recovered/Resolved]
  - Off label use [Unknown]

NARRATIVE: CASE EVENT DATE: 20250130
